FAERS Safety Report 16070195 (Version 1)
Quarter: 2019Q1

REPORT INFORMATION
  Report Type: Spontaneous
  Country: US (occurrence: US)
  Receive Date: 20190314
  Receipt Date: 20190314
  Transmission Date: 20190418
  Serious: No
  Sender: FDA-Public Use
  Company Number: US-GLAXOSMITHKLINE-US2019042921

PATIENT
  Age: 48 Year
  Sex: Female

DRUGS (1)
  1. NICODERM CQ [Suspect]
     Active Substance: NICOTINE
     Indication: SMOKING CESSATION THERAPY
     Dosage: 14 MG, UNK

REACTIONS (4)
  - Application site vesicles [Not Recovered/Not Resolved]
  - Application site pain [Unknown]
  - Application site pruritus [Not Recovered/Not Resolved]
  - Application site reaction [Not Recovered/Not Resolved]
